FAERS Safety Report 7915522-6 (Version None)
Quarter: 2011Q4

REPORT INFORMATION
  Report Type: 
  Country: None (occurrence: None)
  Receive Date: 20111115
  Receipt Date: 20111107
  Transmission Date: 20120403
  Serious: Yes (Other)
  Sender: FDA-Public Use
  Company Number: AU-AMGEN-AUSSP2011051553

PATIENT
  Age: 54 Year
  Sex: Female

DRUGS (1)
  1. DENOSUMAB [Suspect]
     Indication: BREAST CANCER METASTATIC
     Dosage: 120 MG, Q4MO
     Route: 058
     Dates: start: 20110609, end: 20110901

REACTIONS (4)
  - METASTASES TO NECK [None]
  - NODULE [None]
  - DYSPNOEA [None]
  - PARALYSIS [None]
